FAERS Safety Report 6576155-X (Version None)
Quarter: 2010Q1

REPORT INFORMATION
  Report Type: 
  Country: None (occurrence: None)
  Receive Date: 20100209
  Receipt Date: 20100205
  Transmission Date: 20100710
  Serious: Yes (Other)
  Sender: FDA-Public Use
  Company Number: CHPA2010US02688

PATIENT
  Age: 66 Year
  Sex: Male
  Weight: 86.621 kg

DRUGS (2)
  1. PREVACID 24 HR [Suspect]
     Indication: GASTROOESOPHAGEAL REFLUX DISEASE
     Dosage: 15 MG, QD
     Route: 048
     Dates: start: 20090101, end: 20100201
  2. ANTIHYPERTENSIVE DRUGS [Concomitant]

REACTIONS (6)
  - EYE PRURITUS [None]
  - INTENTIONAL DRUG MISUSE [None]
  - LIP SWELLING [None]
  - OFF LABEL USE [None]
  - URTICARIA [None]
  - WRONG TECHNIQUE IN DRUG USAGE PROCESS [None]
